FAERS Safety Report 14815477 (Version 1)
Quarter: 2018Q2

REPORT INFORMATION
  Report Type: Spontaneous
  Country: FR (occurrence: FR)
  Receive Date: 20180426
  Receipt Date: 20180426
  Transmission Date: 20180711
  Serious: Yes (Other)
  Sender: FDA-Public Use
  Company Number: FR-PFIZER INC-2018164100

PATIENT
  Age: 46 Year
  Sex: Female
  Weight: 54 kg

DRUGS (3)
  1. BELUSTINE [Suspect]
     Active Substance: LOMUSTINE
     Indication: GLIOMA
     Dosage: 160MG/CURE
     Route: 048
     Dates: start: 20171121
  2. NATULAN [Suspect]
     Active Substance: PROCARBAZINE HYDROCHLORIDE
     Indication: GLIOMA
     Dosage: 100 MG, FROM DAY 8 TO DAY 21 OF EACH TREATMENT
     Route: 048
     Dates: start: 20171129
  3. VINCRISTINE SULFATE. [Suspect]
     Active Substance: VINCRISTINE SULFATE
     Indication: GLIOMA
     Dosage: 2 MG/CURE
     Route: 041
     Dates: start: 20171227

REACTIONS (2)
  - Cholestasis [Unknown]
  - Hepatocellular injury [Unknown]

NARRATIVE: CASE EVENT DATE: 20180219
